FAERS Safety Report 6353605-5 (Version None)
Quarter: 2009Q3

REPORT INFORMATION
  Report Type: 
  Country: None (occurrence: None)
  Receive Date: 20090912
  Receipt Date: 20090622
  Transmission Date: 20100115
  Serious: No
  Sender: FDA-Public Use
  Company Number: US-ABBOTT-08P-163-0477917-00

PATIENT
  Sex: Female
  Weight: 49.032 kg

DRUGS (6)
  1. HUMIRA [Suspect]
     Indication: PSORIATIC ARTHROPATHY
     Route: 050
     Dates: start: 20070901
  2. HUMIRA [Suspect]
     Route: 050
     Dates: start: 20080910
  3. METHOTREXATE [Concomitant]
     Indication: PSORIATIC ARTHROPATHY
     Route: 048
     Dates: start: 20080301
  4. ALENDRONATE SODIUM [Concomitant]
     Indication: OSTEOPOROSIS
     Route: 048
     Dates: start: 20050101
  5. PROGESTERONE [Concomitant]
     Indication: INSOMNIA
     Route: 048
     Dates: start: 20040101
  6. ESTROGENS CONJUGATED [Concomitant]
     Indication: INSOMNIA
     Route: 048
     Dates: start: 20040101

REACTIONS (4)
  - INCORRECT DOSE ADMINISTERED [None]
  - INJECTION SITE EXTRAVASATION [None]
  - INJECTION SITE PAIN [None]
  - PSORIATIC ARTHROPATHY [None]
